FAERS Safety Report 23416419 (Version 2)
Quarter: 2024Q4

REPORT INFORMATION
  Report Type: Spontaneous
  Country: US (occurrence: US)
  Receive Date: 20240118
  Receipt Date: 20241230
  Transmission Date: 20250115
  Serious: No
  Sender: LANNETT
  Company Number: US-LANNETT COMPANY, INC.-US-2023LAN000123

PATIENT
  Age: 65 Year
  Sex: Male

DRUGS (2)
  1. PRIMIDONE [Suspect]
     Active Substance: PRIMIDONE
     Indication: Product used for unknown indication
     Dosage: UNK
     Route: 065
     Dates: start: 2023, end: 2023
  2. PRIMIDONE [Suspect]
     Active Substance: PRIMIDONE
     Dosage: 1 DF, QD
     Route: 065
     Dates: start: 2023, end: 2023

REACTIONS (5)
  - Tremor [Unknown]
  - Nausea [Unknown]
  - Dizziness [Unknown]
  - Drug intolerance [Unknown]
  - Vomiting [Unknown]

NARRATIVE: CASE EVENT DATE: 20230101
